FAERS Safety Report 6014424-2 (Version None)
Quarter: 2008Q4

REPORT INFORMATION
  Report Type: 
  Country: None (occurrence: None)
  Receive Date: 20081219
  Receipt Date: 20080709
  Transmission Date: 20090506
  Serious: No
  Sender: FDA-Public Use
  Company Number: A0732666A

PATIENT
  Age: 76 Year
  Sex: Male

DRUGS (15)
  1. AVODART [Suspect]
     Indication: BENIGN PROSTATIC HYPERPLASIA
     Dosage: .5MG PER DAY
     Route: 048
     Dates: start: 20071101, end: 20080423
  2. LIPITOR [Concomitant]
  3. LEVOXYL [Concomitant]
  4. ACTOS [Concomitant]
  5. METFORMIN HCL [Concomitant]
  6. PREVACID [Concomitant]
  7. METOPROLOL TARTRATE [Concomitant]
  8. ZANTAC [Concomitant]
  9. PLAVIX [Concomitant]
  10. ASPIRIN [Concomitant]
  11. FIBER [Concomitant]
  12. MILK OF MAGNESIA [Concomitant]
  13. MULTI-VITAMIN [Concomitant]
  14. CIALIS [Concomitant]
     Dosage: 10MG AS REQUIRED
     Route: 048
     Dates: start: 20080423
  15. QUININE SULFATE [Concomitant]
     Indication: RESTLESS LEGS SYNDROME
     Route: 048
     Dates: start: 20080211, end: 20080523

REACTIONS (4)
  - BACK PAIN [None]
  - BREAST ENLARGEMENT [None]
  - BREAST SWELLING [None]
  - PAIN IN EXTREMITY [None]
